FAERS Safety Report 17211721 (Version 1)
Quarter: 2019Q4

REPORT INFORMATION
  Report Type: Spontaneous
  Country: US (occurrence: US)
  Receive Date: 20191230
  Receipt Date: 20191230
  Transmission Date: 20200122
  Serious: No
  Sender: FDA-Public Use
  Company Number: US-AMGEN-USASP2019215280

PATIENT
  Sex: Female

DRUGS (6)
  1. PREVNAR 13 [Concomitant]
     Active Substance: PNEUMOCOCCAL 13-VALENT CONJUGATE VACCINE
  2. ACETAMIN [Concomitant]
     Active Substance: ACETAMINOPHEN
     Dosage: 500 MILLIGRAM
  3. PHENYLEPHRINE [Concomitant]
     Active Substance: PHENYLEPHRINE HYDROCHLORIDE
     Dosage: 10 MILLIGRAM
  4. LEVOTHYROXIN [Concomitant]
     Active Substance: LEVOTHYROXINE
     Dosage: 112 MICROGRAM
  5. REPATHA [Suspect]
     Active Substance: EVOLOCUMAB
     Indication: TYPE IIA HYPERLIPIDAEMIA
     Dosage: 140 MILLIGRAM PER MILLILITRE, Q2WK
     Route: 058
  6. FLUZONE [FLUCONAZOLE] [Concomitant]
     Active Substance: FLUCONAZOLE
     Dosage: INJ PF 16-17

REACTIONS (1)
  - Product dose omission [Unknown]
